FAERS Safety Report 10983235 (Version 1)
Quarter: 2015Q2

REPORT INFORMATION
  Report Type: Report from Study
  Country: US (occurrence: US)
  Receive Date: 20150403
  Receipt Date: 20150403
  Transmission Date: 20150821
  Serious: Yes (Hospitalization)
  Sender: FDA-Public Use
  Company Number: US-PFIZER INC-2015111236

PATIENT
  Age: 35 Year
  Sex: Female
  Weight: 105.8 kg

DRUGS (2)
  1. DOXORUBICIN HCL [Suspect]
     Active Substance: DOXORUBICIN HYDROCHLORIDE
     Indication: SARCOMA METASTATIC
     Dosage: 75 MG/M2, CONTINUOUS INFUSION OVER 24 HOURS FOR 2 DAYS
     Route: 042
     Dates: start: 20150205
  2. TH-302 [Suspect]
     Active Substance: EVOFOSFAMIDE
     Indication: SARCOMA METASTATIC
     Dosage: 300 MG/M2, OVER A 30-60 MINUTE PERIOD DAYS 1 AND 8
     Route: 042
     Dates: start: 20150205

REACTIONS (3)
  - White blood cell count decreased [Unknown]
  - Mallory-Weiss syndrome [Unknown]
  - Oesophageal haemorrhage [Unknown]

NARRATIVE: CASE EVENT DATE: 20150307
